FAERS Safety Report 9937294 (Version 1)
Quarter: 2014Q1

REPORT INFORMATION
  Report Type: Report from Study
  Country: BR (occurrence: BR)
  Receive Date: 20140302
  Receipt Date: 20140302
  Transmission Date: 20141002
  Serious: Yes (Other)
  Sender: FDA-Public Use
  Company Number: PHHY2014BR023873

PATIENT
  Sex: Male
  Weight: 54 kg

DRUGS (1)
  1. ACLASTA [Suspect]
     Indication: OSTEOPOROSIS
     Dosage: 5 MG, UNK
     Route: 042
     Dates: start: 2007, end: 2010

REACTIONS (7)
  - Road traffic accident [Recovering/Resolving]
  - Wound [Recovering/Resolving]
  - Magnesium deficiency [Recovering/Resolving]
  - Calcium deficiency [Recovering/Resolving]
  - Neck pain [Recovering/Resolving]
  - Muscle spasms [Recovering/Resolving]
  - Back pain [Recovering/Resolving]
